FAERS Safety Report 7917387-5 (Version None)
Quarter: 2011Q4

REPORT INFORMATION
  Report Type: 
  Country: None (occurrence: None)
  Receive Date: 20111116
  Receipt Date: 20111109
  Transmission Date: 20120403
  Serious: Yes (Hospitalization, Disabling, Other)
  Sender: FDA-Public Use
  Company Number: PHEH2009US16948

PATIENT
  Sex: Male
  Weight: 92.971 kg

DRUGS (36)
  1. COREG [Concomitant]
  2. PERCOCET [Concomitant]
  3. CELEXA [Concomitant]
     Dosage: 20 MG, BID
  4. FLONASE [Concomitant]
  5. GABAPENTIN [Concomitant]
  6. ZOFRAN [Concomitant]
  7. COLACE [Concomitant]
  8. PHENERGAN [Concomitant]
     Dosage: 25 MG, PRN
  9. POTASSIUM [Concomitant]
  10. ATIVAN [Concomitant]
     Dosage: 1 MG, BID
  11. DULCOLAX [Concomitant]
  12. OXYCODONE HCL [Concomitant]
  13. PLAQUENIL [Concomitant]
     Dosage: 200 MG, QD
  14. PROCRIT [Concomitant]
  15. REVLIMID [Concomitant]
  16. PROMETHAZINE [Concomitant]
  17. MULTI-VITAMIN [Concomitant]
  18. ASPIRIN [Concomitant]
  19. CYPROHEPTADINE HCL [Concomitant]
  20. SALSALATE [Concomitant]
  21. IRON [Concomitant]
  22. OMEPRAZOLE [Concomitant]
  23. AUGMENTIN [Concomitant]
  24. ZOMETA [Suspect]
     Indication: MULTIPLE MYELOMA
     Dosage: 4 MG, QW3
     Dates: start: 20040301
  25. SULFADIAZINE [Concomitant]
  26. PROTONIX [Concomitant]
  27. CALCIUM [Concomitant]
  28. DECADRON [Concomitant]
  29. COUMADIN [Concomitant]
  30. LASIX [Concomitant]
  31. LORAZEPAM [Concomitant]
  32. SULFASALAZINE [Concomitant]
     Dosage: 500 MG, BID
     Route: 048
  33. NEURONTIN [Concomitant]
  34. THALIDOMIDE [Concomitant]
  35. VELCADE [Concomitant]
  36. ARANESP [Concomitant]

REACTIONS (79)
  - PLEURAL EFFUSION [None]
  - OSTEONECROSIS OF JAW [None]
  - ANXIETY [None]
  - ARTHRITIS [None]
  - SEBORRHOEIC DERMATITIS [None]
  - HEADACHE [None]
  - VASCULAR COMPRESSION [None]
  - CORONARY ARTERY DISEASE [None]
  - LOCAL SWELLING [None]
  - STAPHYLOCOCCAL INFECTION [None]
  - EXPOSED BONE IN JAW [None]
  - ANAEMIA [None]
  - OEDEMA PERIPHERAL [None]
  - INJURY [None]
  - CELLULITIS [None]
  - GASTROOESOPHAGEAL REFLUX DISEASE [None]
  - LEFT VENTRICULAR DYSFUNCTION [None]
  - DEPRESSION [None]
  - SUPERIOR VENA CAVA SYNDROME [None]
  - SWELLING FACE [None]
  - ACCIDENT [None]
  - PAIN [None]
  - ANHEDONIA [None]
  - MUSCULOSKELETAL PAIN [None]
  - SPINAL OSTEOARTHRITIS [None]
  - DEEP VEIN THROMBOSIS [None]
  - TINNITUS [None]
  - RHEUMATOID ARTHRITIS [None]
  - OEDEMA [None]
  - SKIN CANCER [None]
  - HYPOKALAEMIA [None]
  - ASTHENIA [None]
  - LEUKOPENIA [None]
  - DIPLOPIA [None]
  - CONFUSIONAL STATE [None]
  - CARDIAC FAILURE CONGESTIVE [None]
  - JOINT DISLOCATION [None]
  - SLEEP APNOEA SYNDROME [None]
  - VENTRICULAR HYPOKINESIA [None]
  - CONSTIPATION [None]
  - OVERWEIGHT [None]
  - MULTIPLE MYELOMA [None]
  - OSTEOPENIA [None]
  - DEAFNESS [None]
  - BREATH ODOUR [None]
  - HYPONATRAEMIA [None]
  - EAR DISORDER [None]
  - TENOSYNOVITIS [None]
  - ARTHRALGIA [None]
  - HYPOTENSION [None]
  - NEUTROPENIA [None]
  - FATIGUE [None]
  - ORAL PAIN [None]
  - PRIMARY SEQUESTRUM [None]
  - SKELETAL INJURY [None]
  - MASTICATION DISORDER [None]
  - SQUAMOUS CELL CARCINOMA [None]
  - ERYTHEMA [None]
  - DYSPNOEA EXERTIONAL [None]
  - INTERVERTEBRAL DISC DEGENERATION [None]
  - HYPOAESTHESIA [None]
  - MYALGIA [None]
  - DECREASED APPETITE [None]
  - DENTAL CARIES [None]
  - ACTIVITIES OF DAILY LIVING IMPAIRED [None]
  - TENDON RUPTURE [None]
  - PNEUMONIA [None]
  - PULMONARY GRANULOMA [None]
  - SKIN LESION [None]
  - OSTEOMYELITIS [None]
  - NEOPLASM MALIGNANT [None]
  - CARDIOMYOPATHY [None]
  - INFECTION [None]
  - NEUROPATHY PERIPHERAL [None]
  - THROMBOCYTOPENIA [None]
  - DIARRHOEA [None]
  - ROTATOR CUFF SYNDROME [None]
  - BONE LOSS [None]
  - ORAL CAVITY FISTULA [None]
